FAERS Safety Report 7874909-0 (Version None)
Quarter: 2011Q4

REPORT INFORMATION
  Report Type: 
  Country: None (occurrence: None)
  Receive Date: 20111031
  Receipt Date: 20111025
  Transmission Date: 20120403
  Serious: Yes (Other)
  Sender: FDA-Public Use
  Company Number: FR-JNJFOC-20110712310

PATIENT
  Age: 49 Year
  Sex: Female

DRUGS (6)
  1. CEFTRIAXONE [Suspect]
     Indication: SEPTIC SHOCK
     Route: 051
     Dates: start: 20110708
  2. LEVOFLOXACIN [Suspect]
     Indication: SEPTIC SHOCK
     Route: 048
     Dates: start: 20110713
  3. GENTAMICIN SULFATE [Suspect]
     Indication: SEPTIC SHOCK
     Route: 051
     Dates: start: 20110717
  4. PREDNISOLONE [Concomitant]
     Indication: PRODUCT USED FOR UNKNOWN INDICATION
     Route: 065
  5. AUGMENTIN [Suspect]
     Indication: SEPTIC SHOCK
     Route: 065
     Dates: start: 20110718
  6. TANGANIL [Concomitant]
     Indication: PRODUCT USED FOR UNKNOWN INDICATION
     Route: 065

REACTIONS (1)
  - DEAFNESS UNILATERAL [None]
